FAERS Safety Report 24233640 (Version 1)
Quarter: 2024Q3

REPORT INFORMATION
  Report Type: Spontaneous
  Country: US (occurrence: US)
  Receive Date: 20240821
  Receipt Date: 20240821
  Transmission Date: 20241017
  Serious: No
  Sender: DERMAVANT SCIENCES
  Company Number: US-Dermavant-001248

PATIENT
  Age: 48 Year
  Sex: Female

DRUGS (1)
  1. VTAMA [Suspect]
     Active Substance: TAPINAROF

REACTIONS (2)
  - Ear swelling [Recovered/Resolved]
  - Erythema [Recovered/Resolved]
